FAERS Safety Report 12617546 (Version 2)
Quarter: 2016Q3

REPORT INFORMATION
  Report Type: Spontaneous
  Country: US (occurrence: US)
  Receive Date: 20160803
  Receipt Date: 20160930
  Transmission Date: 20161109
  Serious: No
  Sender: FDA-Public Use
  Company Number: US-ASTRAZENECA-2016SE60847

PATIENT
  Sex: Female

DRUGS (1)
  1. BRILINTA [Suspect]
     Active Substance: TICAGRELOR
     Indication: ACUTE CORONARY SYNDROME
     Route: 048

REACTIONS (9)
  - Malaise [Unknown]
  - Drug dose omission [Unknown]
  - Skin discolouration [Unknown]
  - Diarrhoea [Unknown]
  - Stress [Unknown]
  - Nasopharyngitis [Unknown]
  - Photophobia [Unknown]
  - Cold sweat [Unknown]
  - Headache [Unknown]
